FAERS Safety Report 9380992 (Version 3)
Quarter: 2014Q1

REPORT INFORMATION
  Report Type: Spontaneous
  Country: GB (occurrence: GB)
  Receive Date: 20130703
  Receipt Date: 20140207
  Transmission Date: 20141002
  Serious: Yes (Hospitalization)
  Sender: FDA-Public Use
  Company Number: GB-BRISTOL-MYERS SQUIBB COMPANY-19051440

PATIENT
  Age: 51 Year
  Sex: Male

DRUGS (12)
  1. SPRYCEL (CML) TABS 100 MG [Suspect]
     Indication: CHRONIC MYELOID LEUKAEMIA
     Route: 048
     Dates: start: 20130418, end: 20130420
  2. GLIVEC [Suspect]
     Indication: CHRONIC MYELOID LEUKAEMIA
     Route: 048
     Dates: start: 20130606, end: 20130613
  3. LANSOPRAZOLE [Suspect]
     Indication: GASTROOESOPHAGEAL REFLUX DISEASE
     Route: 048
     Dates: end: 20130611
  4. CITALOPRAM [Concomitant]
     Route: 048
  5. PEPTAC [Concomitant]
  6. SODIUM ALGINATE [Concomitant]
     Indication: GASTROOESOPHAGEAL REFLUX DISEASE
     Route: 048
     Dates: start: 20130611
  7. SODIUM BICARBONATE [Concomitant]
     Indication: GASTROOESOPHAGEAL REFLUX DISEASE
     Route: 048
     Dates: start: 20130611
  8. CALCIUM CARBONATE [Concomitant]
     Indication: GASTROOESOPHAGEAL REFLUX DISEASE
     Route: 048
     Dates: start: 20130611
  9. AMLODIPINE [Concomitant]
     Indication: HYPERTENSION
     Route: 048
     Dates: start: 20130611
  10. CITALOPRAM [Concomitant]
     Indication: DEPRESSION
     Route: 048
  11. METOCLOPRAMIDE [Concomitant]
  12. RANITIDINE [Concomitant]
     Indication: GASTROOESOPHAGEAL REFLUX DISEASE
     Route: 048
     Dates: start: 20130611

REACTIONS (6)
  - Glomerulonephritis [Recovered/Resolved with Sequelae]
  - Renal vasculitis [Recovered/Resolved with Sequelae]
  - Renal impairment [Recovered/Resolved with Sequelae]
  - Chest pain [Unknown]
  - Rash [Unknown]
  - Headache [Unknown]
